FAERS Safety Report 6474708-0 (Version None)
Quarter: 2009Q4

REPORT INFORMATION
  Report Type: 
  Country: None (occurrence: None)
  Receive Date: 20091204
  Receipt Date: 20091201
  Transmission Date: 20100525
  Serious: Yes (Other)
  Sender: FDA-Public Use
  Company Number: A0832505A

PATIENT
  Age: 59 Year
  Sex: Female

DRUGS (12)
  1. ADVAIR DISKUS 100/50 [Suspect]
     Indication: ASTHMA
     Dosage: 1PUFF TWICE PER DAY
     Route: 055
     Dates: start: 20050101
  2. DYAZIDE [Suspect]
     Indication: DRUG USE FOR UNKNOWN INDICATION
     Route: 048
  3. PAXIL [Suspect]
     Indication: DEPRESSION
     Route: 048
  4. MULTI-VITAMIN [Concomitant]
  5. COQ10 [Concomitant]
  6. VITAMIN D [Concomitant]
  7. LOPRESSOR [Concomitant]
  8. LASIX [Concomitant]
  9. KLOR-CON [Concomitant]
  10. XANAX [Concomitant]
  11. PRAVACHOL [Concomitant]
  12. DAYPRO [Concomitant]

REACTIONS (2)
  - HIATUS HERNIA [None]
  - ULCER HAEMORRHAGE [None]
